FAERS Safety Report 4647286-6 (Version None)
Quarter: 2005Q2

REPORT INFORMATION
  Report Type: 
  Country: None (occurrence: None)
  Receive Date: 20050425
  Receipt Date: 20050425
  Transmission Date: 20051028
  Serious: Yes (Life-Threatening)
  Sender: FDA-Public Use
  Company Number: None

PATIENT
  Age: 64 Year
  Sex: Male
  Weight: 81.6475 kg

DRUGS (2)
  1. BEXTRA [Suspect]
     Indication: ARTHRITIS
     Dosage: 1 PILL PER DAY ORAL
     Route: 048
     Dates: start: 19980101, end: 20050101
  2. BEXTRA [Suspect]
     Indication: BURSITIS
     Dosage: 1 PILL PER DAY ORAL
     Route: 048
     Dates: start: 19980101, end: 20050101

REACTIONS (1)
  - CORONARY ARTERY OCCLUSION [None]
